FAERS Safety Report 5630133-3 (Version None)
Quarter: 2008Q1

REPORT INFORMATION
  Report Type: 
  Country: None (occurrence: None)
  Receive Date: 20080219
  Receipt Date: 20080206
  Transmission Date: 20080703
  Serious: Yes (Other)
  Sender: FDA-Public Use
  Company Number: US-BAYER-200813129NA

PATIENT
  Age: 27 Year
  Sex: Female
  Weight: 59 kg

DRUGS (2)
  1. MIRENA [Suspect]
     Indication: CONTRACEPTION
     Route: 015
     Dates: start: 20020131
  2. NATURAL PRODUCTS [Concomitant]

REACTIONS (19)
  - ACNE [None]
  - AMENORRHOEA [None]
  - ARTHRALGIA [None]
  - COMPLICATION OF DEVICE REMOVAL [None]
  - DEPRESSION [None]
  - DERMAL CYST [None]
  - DERMATITIS ALLERGIC [None]
  - DIZZINESS [None]
  - FURUNCLE [None]
  - GENITAL RASH [None]
  - IUD MIGRATION [None]
  - METRORRHAGIA [None]
  - OVARIAN CYST [None]
  - POST PROCEDURAL HAEMORRHAGE [None]
  - PROCEDURAL PAIN [None]
  - PRURITUS [None]
  - RASH [None]
  - UNEVALUABLE EVENT [None]
  - VAGINAL DISCHARGE [None]
